FAERS Safety Report 11436872 (Version 1)
Quarter: 2015Q3

REPORT INFORMATION
  Report Type: Spontaneous
  Country: None (occurrence: US)
  Receive Date: 20150821
  Receipt Date: 20150821
  Transmission Date: 20151125
  Serious: No
  Sender: FDA-Public Use
  Company Number: US-ELI_LILLY_AND_COMPANY-US200702000817

PATIENT
  Sex: Female

DRUGS (2)
  1. EVISTA [Suspect]
     Active Substance: RALOXIFENE HYDROCHLORIDE
     Indication: OSTEOPENIA
     Dosage: UNK, UNK
     Dates: start: 2004
  2. CYMBALTA [Suspect]
     Active Substance: DULOXETINE HYDROCHLORIDE
     Indication: NEURALGIA
     Dosage: 120 MG, DAILY (1/D)
     Dates: start: 2006

REACTIONS (5)
  - Fall [Recovered/Resolved]
  - Lymphadenopathy [Not Recovered/Not Resolved]
  - Pain [Recovered/Resolved]
  - Contusion [Recovered/Resolved]
  - Nipple disorder [Recovered/Resolved]

NARRATIVE: CASE EVENT DATE: 2006
